FAERS Safety Report 21794890 (Version 3)
Quarter: 2023Q1

REPORT INFORMATION
  Report Type: Report from Study
  Country: US (occurrence: US)
  Receive Date: 20221229
  Receipt Date: 20230327
  Transmission Date: 20230418
  Serious: Yes (Other)
  Sender: FDA-Public Use
  Company Number: US-ABBVIE-4249785

PATIENT
  Sex: Male

DRUGS (5)
  1. HUMIRA [Suspect]
     Active Substance: ADALIMUMAB
     Indication: Rheumatoid arthritis
     Dosage: CITRATE FREE, STRENGTH: 40 MILLIGRAM
     Route: 058
  2. HUMIRA [Suspect]
     Active Substance: ADALIMUMAB
     Dosage: DISCONTINUED IN 2022, CITRATE FREE, STRENGTH: 40 MG,?IN 2022, PATIENT HAD GROWTH WITHIN THYROID A...
     Route: 058
     Dates: start: 20220209
  3. METHIMAZOLE [Concomitant]
     Active Substance: METHIMAZOLE
     Indication: Product used for unknown indication
  4. RUGBY CAL-GEST ANTACID ASSORTED FLAVORS [Concomitant]
     Active Substance: CALCIUM CARBONATE
     Indication: Product used for unknown indication
     Dosage: TIME INTERVAL: 0.0625 DAYS: 50 MG, 4 TABS EVERY 6 HOURS
  5. LEVOTHYROXINE [Concomitant]
     Active Substance: LEVOTHYROXINE
     Indication: Product used for unknown indication

REACTIONS (3)
  - Thyroid mass [Recovering/Resolving]
  - Dysphagia [Unknown]
  - Aphonia [Recovering/Resolving]
